FAERS Safety Report 4657777-X (Version None)
Quarter: 2005Q2

REPORT INFORMATION
  Report Type: 
  Country: None (occurrence: None)
  Receive Date: 20050505
  Receipt Date: 20050323
  Transmission Date: 20051028
  Serious: Yes (Life-Threatening, Other)
  Sender: FDA-Public Use
  Company Number: US-SHR-04-024288

PATIENT
  Age: 57 Year
  Sex: Female

DRUGS (2)
  1. REFLUDAN [Suspect]
     Indication: HEPARIN-INDUCED THROMBOCYTOPENIA
     Dosage: BOLUS, 1 DOSE, INTRAVENOUS;  FULL COURSE, INTRAVENOUS
     Route: 042
     Dates: start: 20040301, end: 20040301
  2. REFLUDAN [Suspect]
     Indication: HEPARIN-INDUCED THROMBOCYTOPENIA
     Dosage: BOLUS, 1 DOSE, INTRAVENOUS;  FULL COURSE, INTRAVENOUS
     Route: 042
     Dates: start: 20040416, end: 20040416

REACTIONS (6)
  - ANAPHYLACTIC REACTION [None]
  - LOSS OF CONSCIOUSNESS [None]
  - OROPHARYNGEAL SWELLING [None]
  - PULSE ABSENT [None]
  - VENTRICULAR FIBRILLATION [None]
  - VENTRICULAR TACHYCARDIA [None]
